FAERS Safety Report 14327237 (Version 9)
Quarter: 2018Q3

REPORT INFORMATION
  Report Type: Spontaneous
  Country: CA (occurrence: CA)
  Receive Date: 20171227
  Receipt Date: 20180926
  Transmission Date: 20181010
  Serious: Yes (Other)
  Sender: FDA-Public Use
  Company Number: CA-CELLTRION INC.-2017CA013052

PATIENT

DRUGS (11)
  1. HYDROCORTISONE. [Concomitant]
     Active Substance: HYDROCORTISONE
     Dosage: 100 MG, PRE?INFLECTRA
     Route: 042
     Dates: start: 20170920
  2. INFLECTRA [Suspect]
     Active Substance: INFLIXIMAB-DYYB
     Dosage: 330 MG, 0, 2, 6 WEEKS,THEN EVERY 8 WEEKS
     Route: 042
     Dates: start: 20171026
  3. INFLECTRA [Suspect]
     Active Substance: INFLIXIMAB-DYYB
     Dosage: 330 MG, 0, 2, 6 WEEKS,THEN EVERY 8 WEEKS
     Route: 042
     Dates: start: 20180502
  4. CIPRO [Concomitant]
     Active Substance: CIPROFLOXACIN HYDROCHLORIDE
     Dosage: 500 MG, BID
     Dates: start: 201708
  5. ACETAMINOPHEN. [Concomitant]
     Active Substance: ACETAMINOPHEN
     Dosage: 650 MG, PRE?INFLECTRA
     Route: 048
     Dates: start: 20170920
  6. INFLECTRA [Suspect]
     Active Substance: INFLIXIMAB-DYYB
     Indication: CROHN^S DISEASE
     Dosage: 330 MG, 0, 2, 6 WEEKS,THEN EVERY 8 WEEKS
     Route: 042
     Dates: start: 20170914
  7. INFLECTRA [Suspect]
     Active Substance: INFLIXIMAB-DYYB
     Dosage: 330 MG, 0, 2, 6 WEEKS,THEN EVERY 8 WEEKS
     Route: 042
     Dates: start: 20171221
  8. AZATHIOPRINE. [Concomitant]
     Active Substance: AZATHIOPRINE
     Dosage: 2 AND A 1/2 DF, DAILY
     Route: 048
     Dates: start: 201505
  9. TRI?CYCLEN [Concomitant]
     Active Substance: ETHINYL ESTRADIOL\NORGESTIMATE
     Dosage: UNK, DAILY
     Route: 048
  10. INFLECTRA [Suspect]
     Active Substance: INFLIXIMAB-DYYB
     Dosage: 330 MG, 0, 2, 6 WEEKS,THEN EVERY 8 WEEKS
     Route: 042
     Dates: start: 20180301
  11. FLAGYL [Concomitant]
     Active Substance: METRONIDAZOLE\METRONIDAZOLE HYDROCHLORIDE
     Dosage: 500 MG, BID
     Route: 048
     Dates: start: 201708

REACTIONS (19)
  - Haematochezia [Unknown]
  - Anal abscess [Recovered/Resolved]
  - Proctalgia [Unknown]
  - Pruritus [Recovered/Resolved]
  - Thermal burn [Not Recovered/Not Resolved]
  - Peripheral swelling [Unknown]
  - Blister infected [Not Recovered/Not Resolved]
  - Cough [Recovered/Resolved]
  - Bone fistula [Unknown]
  - Pain [Unknown]
  - Pelvic pain [Unknown]
  - Nasopharyngitis [Recovered/Resolved]
  - Female genital tract fistula [Unknown]
  - Inappropriate schedule of drug administration [Unknown]
  - Fistula discharge [Unknown]
  - Pain in extremity [Not Recovered/Not Resolved]
  - Pelvic abscess [Unknown]
  - Drug level below therapeutic [Unknown]
  - Disease recurrence [Unknown]

NARRATIVE: CASE EVENT DATE: 201711
